FAERS Safety Report 14325935 (Version 5)
Quarter: 2018Q1

REPORT INFORMATION
  Report Type: Spontaneous
  Country: JP (occurrence: JP)
  Receive Date: 20171226
  Receipt Date: 20180307
  Transmission Date: 20180509
  Serious: Yes (Hospitalization, Other)
  Sender: FDA-Public Use
  Company Number: JP-ALLERGAN-1773508US

PATIENT
  Age: 71 Year
  Sex: Male
  Weight: 39 kg

DRUGS (9)
  1. ESCITALOPRAM OXALATE - BP [Suspect]
     Active Substance: ESCITALOPRAM OXALATE
     Indication: DEPRESSION
     Dosage: 10-20 MG/DAY
     Route: 048
     Dates: start: 20170512, end: 20171116
  2. ROZEREM(RAMELTEON) [Concomitant]
     Indication: INSOMNIA
     Dosage: 8 MG, UNK
     Route: 048
     Dates: start: 20170508
  3. DONEPEZIL HYDROCHLORIDE. [Concomitant]
     Active Substance: DONEPEZIL HYDROCHLORIDE
     Indication: COGNITIVE DISORDER
     Dosage: 5 MG, UNK
     Route: 048
     Dates: start: 20171023, end: 20171117
  4. ISOSORBIDE DINITRATE. [Concomitant]
     Active Substance: ISOSORBIDE DINITRATE
     Indication: PRINZMETAL ANGINA
     Dosage: 40 MG, QD
     Route: 062
     Dates: start: 20170805, end: 20171117
  5. IOPAMIDOL [Concomitant]
     Active Substance: IOPAMIDOL
     Indication: COMPUTERISED TOMOGRAM
     Dosage: UNK
     Route: 042
     Dates: start: 20171117, end: 20171117
  6. LANSOPRAZOLE. [Concomitant]
     Active Substance: LANSOPRAZOLE
     Indication: DYSPEPSIA
     Dosage: 1 DF, UNK
     Route: 048
     Dates: start: 20170508, end: 20171115
  7. MIYA BM(CLOSTRIDIUM BUTYRICUM) [Concomitant]
     Indication: FLATULENCE
     Dosage: 1 DF, UNK
     Route: 048
     Dates: start: 20171115, end: 20171117
  8. AMLODIPINE(AMLODIPINE BESILATE) [Concomitant]
     Indication: HYPERTENSION
     Dosage: 2.5 MG, UNK
     Route: 048
     Dates: start: 20170508
  9. ROZEREM(RAMELTEON) [Concomitant]
     Dosage: 4 MG, UNK
     Route: 048

REACTIONS (4)
  - Drug withdrawal syndrome [Recovering/Resolving]
  - Somnolence [Recovering/Resolving]
  - Suicidal ideation [Recovering/Resolving]
  - Drug ineffective [Unknown]

NARRATIVE: CASE EVENT DATE: 20171003
